FAERS Safety Report 7191563-4 (Version None)
Quarter: 2010Q4

REPORT INFORMATION
  Report Type: 
  Country: None (occurrence: None)
  Receive Date: 20101223
  Receipt Date: 20100929
  Transmission Date: 20110411
  Serious: Yes (Other)
  Sender: FDA-Public Use
  Company Number: IT-BAYER-201041345GPV

PATIENT
  Sex: Male

DRUGS (2)
  1. NEXAVAR [Suspect]
     Dosage: 400 MG (DAILY DOSE), , ORAL
     Route: 048
     Dates: start: 20090806, end: 20100511
  2. NEXAVAR [Suspect]
     Dosage: AS USED DOSE: UNK
     Route: 048

REACTIONS (1)
  - DEMYELINATING POLYNEUROPATHY [None]
